FAERS Safety Report 26217343 (Version 1)
Quarter: 2025Q4

REPORT INFORMATION
  Report Type: Spontaneous
  Country: US (occurrence: US)
  Receive Date: 20251231
  Receipt Date: 20251231
  Transmission Date: 20260118
  Serious: Yes (Hospitalization)
  Sender: MYLAN
  Company Number: US-MYLANLABS-2025M1110147

PATIENT
  Age: 50 Year
  Sex: Male

DRUGS (7)
  1. HALOPERIDOL [Suspect]
     Active Substance: HALOPERIDOL
     Indication: Agitation
     Dosage: 5 MILLIGRAM, SINGLE DOSE
  2. DIPHENHYDRAMINE [Suspect]
     Active Substance: DIPHENHYDRAMINE
     Indication: Agitation
     Dosage: 50 MILLIGRAM, SINGLE DOSE
  3. LORAZEPAM [Suspect]
     Active Substance: LORAZEPAM
     Indication: Agitation
     Dosage: 2 MILLIGRAM, SINGLE DOSE
  4. AZITHROMYCIN [Suspect]
     Active Substance: AZITHROMYCIN
     Indication: Pyrexia
     Dosage: 500 MILLIGRAM
  5. AZITHROMYCIN [Suspect]
     Active Substance: AZITHROMYCIN
     Indication: Evidence based treatment
  6. CEFTRIAXONE [Concomitant]
     Active Substance: CEFTRIAXONE
     Indication: Pyrexia
     Dosage: 1 GRAM
  7. CEFTRIAXONE [Concomitant]
     Active Substance: CEFTRIAXONE
     Indication: Evidence based treatment

REACTIONS (2)
  - Electrocardiogram QT prolonged [Recovering/Resolving]
  - Ventricular tachycardia [Recovering/Resolving]
